FAERS Safety Report 22144078 (Version 1)
Quarter: 2023Q1

REPORT INFORMATION
  Report Type: Report from Study
  Country: US (occurrence: US)
  Receive Date: 20230327
  Receipt Date: 20230327
  Transmission Date: 20230417
  Serious: Yes (Hospitalization)
  Sender: FDA-Public Use
  Company Number: US-ABBVIE-4250019

PATIENT
  Sex: Female

DRUGS (3)
  1. SKYRIZI [Suspect]
     Active Substance: RISANKIZUMAB-RZAA
     Indication: Psoriasis
     Dosage: WEEK 0
     Route: 058
     Dates: start: 20221101
  2. SKYRIZI [Suspect]
     Active Substance: RISANKIZUMAB-RZAA
     Dosage: WEEK 2
     Route: 058
     Dates: start: 20221129
  3. SKYRIZI [Suspect]
     Active Substance: RISANKIZUMAB-RZAA
     Dosage: WEEK 3
     Route: 058
     Dates: start: 20230228

REACTIONS (8)
  - Bacterial test positive [Unknown]
  - Ear pruritus [Unknown]
  - Urinary tract infection [Unknown]
  - Nasal congestion [Unknown]
  - Hypersensitivity [Unknown]
  - White blood cell count increased [Unknown]
  - Throat irritation [Unknown]
  - Infected cyst [Recovered/Resolved]

NARRATIVE: CASE EVENT DATE: 20220101
